FAERS Safety Report 5455926-7 (Version None)
Quarter: 2007Q3

REPORT INFORMATION
  Report Type: 
  Country: None (occurrence: None)
  Receive Date: 20070918
  Receipt Date: 20070228
  Transmission Date: 20080115
  Serious: Yes (Hospitalization, Other)
  Sender: FDA-Public Use
  Company Number: US-ASTRAZENECA-2006UW24140

PATIENT
  Sex: Female
  Weight: 86.4 kg

DRUGS (6)
  1. SEROQUEL [Suspect]
     Indication: DEPRESSION
     Route: 048
  2. ABILIFY [Concomitant]
     Dates: start: 20030101, end: 20040101
  3. RISPERDAL [Concomitant]
  4. ZYPREXA [Concomitant]
     Dates: start: 20020101, end: 20030101
  5. CELEXA [Concomitant]
  6. MARIJUANA [Concomitant]

REACTIONS (3)
  - DIABETES MELLITUS [None]
  - MALAISE [None]
  - PANCREATITIS [None]
